FAERS Safety Report 5328039-2 (Version None)
Quarter: 2007Q2

REPORT INFORMATION
  Report Type: 
  Country: None (occurrence: None)
  Receive Date: 20070514
  Receipt Date: 20070501
  Transmission Date: 20071010
  Serious: No
  Sender: FDA-Public Use
  Company Number: US020033

PATIENT
  Sex: Female

DRUGS (3)
  1. FENTORA [Suspect]
     Indication: BREAKTHROUGH PAIN
     Dosage: QID BUCCAL
     Route: 002
     Dates: start: 20070501
  2. FENTORA [Suspect]
     Indication: CANCER PAIN
     Dosage: QID BUCCAL
     Route: 002
     Dates: start: 20070501
  3. OXYCONTIN [Concomitant]

REACTIONS (1)
  - CIRCUMSTANCE OR INFORMATION CAPABLE OF LEADING TO MEDICATION ERROR [None]
